FAERS Safety Report 8900712 (Version 1)
Quarter: 2012Q4

REPORT INFORMATION
  Report Type: 
  Country: CA (occurrence: CA)
  Receive Date: 20121109
  Receipt Date: 20121109
  Transmission Date: 20130627
  Serious: Yes (Other)
  Sender: FDA-Public Use
  Company Number: PHHY2008CA37284

PATIENT
  Sex: Female

DRUGS (1)
  1. SANDOSTATIN LAR [Suspect]
     Indication: OVARIAN CANCER
     Dosage: 40 mg, QMO
     Route: 030
     Dates: start: 20080208

REACTIONS (4)
  - Blood pressure decreased [Unknown]
  - Oedema peripheral [Unknown]
  - Gait disturbance [Unknown]
  - Diarrhoea [Unknown]
